FAERS Safety Report 6437309-6 (Version None)
Quarter: 2009Q4

REPORT INFORMATION
  Report Type: 
  Country: None (occurrence: None)
  Receive Date: 20091112
  Receipt Date: 20091109
  Transmission Date: 20100525
  Serious: Yes (Other)
  Sender: FDA-Public Use
  Company Number: CN-ROCHE-667390

PATIENT
  Age: 40 Year
  Sex: Male

DRUGS (2)
  1. PEG-INTERFERON ALFA 2A (RO 25-8310) [Suspect]
     Indication: HEPATITIS B
     Dosage: THE STRENGTH WAS 180 UG.
     Route: 058
     Dates: start: 20090123, end: 20091001
  2. PEG-INTERFERON ALFA 2A (RO 25-8310) [Suspect]
     Dosage: THE STRENGTH WAS 135 UG.
     Route: 058
     Dates: start: 20091001

REACTIONS (1)
  - EPILEPSY [None]
